FAERS Safety Report 10243280 (Version 1)
Quarter: 2014Q2

REPORT INFORMATION
  Report Type: Spontaneous
  Country: JP (occurrence: JP)
  Receive Date: 20140618
  Receipt Date: 20140618
  Transmission Date: 20141212
  Serious: Yes (Other)
  Sender: FDA-Public Use
  Company Number: PHHY2014JP074248

PATIENT
  Sex: Male

DRUGS (4)
  1. NEORAL [Suspect]
     Indication: HYPEREOSINOPHILIC SYNDROME
     Dosage: 150 MG, DAILY
     Route: 048
  2. NEORAL [Suspect]
     Indication: OFF LABEL USE
     Dosage: 75 MG,DAILY
     Route: 048
  3. PREDNISOLONE [Suspect]
     Indication: HYPEREOSINOPHILIC SYNDROME
     Dosage: 50 MG,DAILY
  4. PREDNISOLONE [Suspect]
     Dosage: 10 MG, DAILY

REACTIONS (4)
  - Osteoporosis [Unknown]
  - Spinal compression fracture [Unknown]
  - Oedema [Unknown]
  - Therapeutic response decreased [Unknown]
